FAERS Safety Report 15267341 (Version 4)
Quarter: 2020Q2

REPORT INFORMATION
  Report Type: Spontaneous
  Country: US (occurrence: US)
  Receive Date: 20180811
  Receipt Date: 20200520
  Transmission Date: 20200713
  Serious: Yes (Hospitalization)
  Sender: FDA-Public Use
  Company Number: US-JNJFOC-20180739042

PATIENT
  Age: 69 Year
  Sex: Male
  Weight: 74.9 kg

DRUGS (4)
  1. XARELTO [Suspect]
     Active Substance: RIVAROXABAN
     Indication: ATRIAL FIBRILLATION
  2. XARELTO [Suspect]
     Active Substance: RIVAROXABAN
     Indication: THROMBOSIS PROPHYLAXIS
  3. ASPIRIN. [Suspect]
     Active Substance: ASPIRIN
     Indication: ATRIAL FIBRILLATION
     Route: 048
     Dates: end: 201701
  4. XARELTO [Suspect]
     Active Substance: RIVAROXABAN
     Indication: CEREBROVASCULAR ACCIDENT PROPHYLAXIS
     Dosage: WITH EVENING MEAL
     Route: 048
     Dates: start: 20160301, end: 20170119

REACTIONS (2)
  - Fall [Unknown]
  - Subdural haematoma [Unknown]

NARRATIVE: CASE EVENT DATE: 20170119
